FAERS Safety Report 24252238 (Version 1)
Quarter: 2024Q3

REPORT INFORMATION
  Report Type: Spontaneous
  Country: CN (occurrence: CN)
  Receive Date: 20240827
  Receipt Date: 20240827
  Transmission Date: 20241016
  Serious: Yes (Other)
  Sender: GE HEALTHCARE
  Company Number: CN-GE HEALTHCARE-2024CSU009356

PATIENT
  Age: 72 Year
  Sex: Male
  Weight: 60 kg

DRUGS (11)
  1. VISIPAQUE [Suspect]
     Active Substance: IODIXANOL
     Indication: Computerised tomogram
     Dosage: 32 GM, TOTAL
     Route: 042
     Dates: start: 20240807, end: 20240807
  2. CEFAZOLIN SODIUM [Concomitant]
     Active Substance: CEFAZOLIN SODIUM
     Indication: Colitis
     Dosage: 2 GM, BID
     Route: 041
     Dates: start: 20240804, end: 20240808
  3. SODIUM CHLORIDE [Concomitant]
     Active Substance: SODIUM CHLORIDE
     Indication: Vehicle solution use
     Dosage: 100 ML, BID
     Route: 041
     Dates: start: 20240804, end: 20240808
  4. DEXTROSE\SODIUM CHLORIDE [Concomitant]
     Active Substance: DEXTROSE\SODIUM CHLORIDE
     Indication: Vehicle solution use
     Dosage: 500 ML, TOTAL
     Route: 041
     Dates: start: 20240804, end: 20240808
  5. VITAMIN C [Concomitant]
     Active Substance: ASCORBIC ACID
     Indication: Fluid replacement
     Dosage: 2 GM, TOTAL
     Route: 041
     Dates: start: 20240804, end: 20240808
  6. VITAMIN B6 [Concomitant]
     Active Substance: PYRIDOXINE HYDROCHLORIDE
     Indication: Fluid replacement
     Dosage: 100 MG, TOTAL
     Route: 041
     Dates: start: 20240804, end: 20240808
  7. DEXTROSE [Concomitant]
     Active Substance: DEXTROSE\DEXTROSE MONOHYDRATE
     Indication: Vehicle solution use
     Dosage: 100 ML, TOTAL
     Route: 041
     Dates: start: 20240804, end: 20240804
  8. PHLOROGLUCINOL [Concomitant]
     Active Substance: PHLOROGLUCINOL
     Indication: Muscle spasms
     Dosage: 80 MG, TOTAL
     Route: 041
     Dates: start: 20240804, end: 20240804
  9. METRONIDAZOLE\SODIUM CHLORIDE [Concomitant]
     Active Substance: METRONIDAZOLE\SODIUM CHLORIDE
     Indication: Colitis
     Dosage: 100 ML, BID
     Route: 041
     Dates: start: 20240805, end: 20240808
  10. Polyethylene glycol electrolyte powder(i) [Concomitant]
     Indication: Bowel preparation
     Dosage: 139.12 GM, BID
     Route: 048
     Dates: start: 20240807, end: 20240807
  11. Polyethylene glycol electrolyte powder(i) [Concomitant]
     Dosage: 69.56 UNK
     Route: 048

REACTIONS (3)
  - Coagulation time prolonged [Not Recovered/Not Resolved]
  - Blood fibrinogen decreased [Not Recovered/Not Resolved]
  - Acute kidney injury [Not Recovered/Not Resolved]

NARRATIVE: CASE EVENT DATE: 20240807
